FAERS Safety Report 8829611 (Version 1)
Quarter: 2012Q4

REPORT INFORMATION
  Report Type: 
  Country: US (occurrence: US)
  Receive Date: 20121008
  Receipt Date: 20121008
  Transmission Date: 20130627
  Serious: No
  Sender: FDA-Public Use
  Company Number: US-TEVA-320393USA

PATIENT
  Age: 8 Year
  Sex: Female

DRUGS (2)
  1. QVAR [Suspect]
     Indication: ASTHMA
     Dosage: 160 Microgram Daily;
     Route: 055
     Dates: start: 20120126, end: 20120131
  2. SALBUTAMOL SULFATE [Concomitant]
     Indication: ASTHMA
     Route: 055
     Dates: start: 20120126

REACTIONS (2)
  - Pruritus [Recovered/Resolved]
  - Urticaria [Recovered/Resolved]
